FAERS Safety Report 17158054 (Version 1)
Quarter: 2019Q4

REPORT INFORMATION
  Report Type: Spontaneous
  Country: US (occurrence: US)
  Receive Date: 20191216
  Receipt Date: 20191216
  Transmission Date: 20200122
  Serious: Yes (Other)
  Sender: FDA-Public Use
  Company Number: US-RADIUS HEALTH INC.-2019US004646

PATIENT
  Age: 76 Year
  Sex: Female

DRUGS (2)
  1. TYMLOS [Suspect]
     Active Substance: ABALOPARATIDE
     Indication: OSTEOPOROSIS POSTMENOPAUSAL
     Dosage: 4 CLICKS OF THE PEN, UNK
     Route: 058
     Dates: start: 201908
  2. TYMLOS [Suspect]
     Active Substance: ABALOPARATIDE
     Dosage: 80 MCG, UNK
     Route: 058
     Dates: end: 20191125

REACTIONS (10)
  - Product quality issue [Unknown]
  - Dizziness [Unknown]
  - Urinary incontinence [Unknown]
  - Hypotension [Unknown]
  - Asthenia [Unknown]
  - Intentional underdose [Unknown]
  - Loss of consciousness [Unknown]
  - Cold sweat [Unknown]
  - Fatigue [Unknown]
  - Wrong technique in product usage process [Unknown]

NARRATIVE: CASE EVENT DATE: 201908
